FAERS Safety Report 4318013-7 (Version None)
Quarter: 2004Q1

REPORT INFORMATION
  Report Type: 
  Country: None (occurrence: None)
  Receive Date: 20040316
  Receipt Date: 20040311
  Transmission Date: 20041129
  Serious: Yes (Other)
  Sender: FDA-Public Use
  Company Number: WAES 0403CAN00068

PATIENT
  Sex: Male

DRUGS (1)
  1. PROPECIA [Suspect]
     Dates: start: 19990101

REACTIONS (3)
  - CRYPTORCHISM [None]
  - TESTICULAR ATROPHY [None]
  - TRANSMISSION OF DRUG VIA SEMEN [None]
